FAERS Safety Report 18873221 (Version 1)
Quarter: 2021Q1

REPORT INFORMATION
  Report Type: Spontaneous
  Country: IN (occurrence: IN)
  Receive Date: 20210210
  Receipt Date: 20210210
  Transmission Date: 20210420
  Serious: Yes (Other)
  Sender: FDA-Public Use
  Company Number: IN-BION-009438

PATIENT
  Age: 21 Year
  Sex: Male

DRUGS (1)
  1. VALPROIC ACID UNKNOWN PRODUCT [Suspect]
     Active Substance: VALPROIC ACID
     Indication: SEIZURE
     Dosage: SINCE THE LAST 3 YEARS
     Route: 048

REACTIONS (1)
  - Cataract [Recovered/Resolved]
